FAERS Safety Report 6279844-X (Version None)
Quarter: 2009Q3

REPORT INFORMATION
  Report Type: 
  Country: None (occurrence: None)
  Receive Date: 20090723
  Receipt Date: 20090714
  Transmission Date: 20100115
  Serious: Yes (Other)
  Sender: FDA-Public Use
  Company Number: PHHY2008MX31502

PATIENT
  Sex: Female

DRUGS (2)
  1. ZELMAC [Suspect]
     Indication: IRRITABLE BOWEL SYNDROME
     Dosage: 2 TAB (6 MG)/DAY
     Route: 048
     Dates: start: 20080922, end: 20081120
  2. PARIET [Concomitant]
     Dosage: 2 TAB/DAY
     Dates: start: 20081120

REACTIONS (3)
  - DIARRHOEA [None]
  - URINARY TRACT INFECTION [None]
  - VOMITING [None]
